FAERS Safety Report 5701394-7 (Version None)
Quarter: 2008Q2

REPORT INFORMATION
  Report Type: 
  Country: None (occurrence: None)
  Receive Date: 20080410
  Receipt Date: 20080402
  Transmission Date: 20081010
  Serious: No
  Sender: FDA-Public Use
  Company Number: US-BAXTER-2008BH003155

PATIENT
  Age: 0 Day
  Sex: Female

DRUGS (1)
  1. HEPARIN SODIUM [Suspect]
     Indication: DRUG USE FOR UNKNOWN INDICATION
     Dosage: DOSE UNIT:UNKNOWN
     Route: 064
     Dates: start: 20070101, end: 20080111

REACTIONS (3)
  - DRUG EXPOSURE DURING PREGNANCY [None]
  - HERNIA [None]
  - PHARMACEUTICAL PRODUCT COMPLAINT [None]
